FAERS Safety Report 24692452 (Version 2)
Quarter: 2025Q3

REPORT INFORMATION
  Report Type: Spontaneous
  Country: EU (occurrence: EU)
  Receive Date: 20241203
  Receipt Date: 20250809
  Transmission Date: 20251021
  Serious: Yes (Other)
  Sender: ALEXION PHARMACEUTICALS
  Company Number: None

PATIENT
  Age: 11 Year
  Sex: Male
  Weight: 41 kg

DRUGS (3)
  1. SELUMETINIB [Suspect]
     Active Substance: SELUMETINIB
     Indication: Neurofibroma
     Dosage: 30 MG BID
     Dates: start: 20180601, end: 20181116
  2. SELUMETINIB [Suspect]
     Active Substance: SELUMETINIB
     Dates: start: 20181116, end: 20181214
  3. RISPERIDONE [Concomitant]
     Active Substance: RISPERIDONE
     Indication: Autism spectrum disorder
     Dates: start: 20180713

REACTIONS (2)
  - Hypermetabolism [Unknown]
  - Positron emission tomogram abnormal [Unknown]

NARRATIVE: CASE EVENT DATE: 20181130
